FAERS Safety Report 10021542 (Version 1)
Quarter: 2014Q1

REPORT INFORMATION
  Report Type: Spontaneous
  Country: US (occurrence: None)
  Receive Date: 20140318
  Receipt Date: 20140318
  Transmission Date: 20141002
  Serious: No
  Sender: FDA-Public Use
  Company Number: None

PATIENT
  Age: 46 Year
  Sex: Female
  Weight: 61.24 kg

DRUGS (1)
  1. MUPIROCIN [Suspect]
     Indication: HAIR DISORDER
     Dosage: OINTMENT
     Route: 045
     Dates: start: 20140312, end: 20140312

REACTIONS (1)
  - Hypersensitivity [None]
